FAERS Safety Report 8136337-2 (Version None)
Quarter: 2012Q1

REPORT INFORMATION
  Report Type: 
  Country: None (occurrence: None)
  Receive Date: 20120214
  Receipt Date: 20120208
  Transmission Date: 20120608
  Serious: Yes (Other)
  Sender: FDA-Public Use
  Company Number: US-BAYER-2011-096044

PATIENT
  Age: 47 Year
  Sex: Female

DRUGS (3)
  1. ELESTAT [Concomitant]
  2. COMBIGAN [Concomitant]
     Route: 047
  3. MIRENA [Suspect]
     Dosage: 20 MCG/24HR, CONT
     Route: 015
     Dates: start: 20090101, end: 20120118

REACTIONS (4)
  - GLAUCOMA [None]
  - MIGRAINE [None]
  - HYPERSENSITIVITY [None]
  - EYE ALLERGY [None]
